FAERS Safety Report 4822746-3 (Version None)
Quarter: 2005Q4

REPORT INFORMATION
  Report Type: 
  Country: None (occurrence: None)
  Receive Date: 20051107
  Receipt Date: 20051107
  Transmission Date: 20060501
  Serious: Yes (Other)
  Sender: FDA-Public Use
  Company Number: None

PATIENT
  Age: 24 Year
  Sex: Female
  Weight: 46.5391 kg

DRUGS (2)
  1. EFFEXOR [Suspect]
     Indication: ANXIETY
     Dosage: 25 MC DAILY PO
     Route: 048
     Dates: start: 20021211, end: 20051015
  2. EFFEXOR [Suspect]
     Indication: DEPRESSION
     Dosage: 25 MC DAILY PO
     Route: 048
     Dates: start: 20021211, end: 20051015

REACTIONS (6)
  - DERMAL CYST [None]
  - FURUNCLE [None]
  - HERPES VIRUS INFECTION [None]
  - PURULENCE [None]
  - SKIN HAEMORRHAGE [None]
  - SWELLING [None]
